FAERS Safety Report 10990796 (Version 1)
Quarter: 2015Q1

REPORT INFORMATION
  Report Type: Spontaneous
  Country: US (occurrence: None)
  Receive Date: 20150330
  Receipt Date: 20150330
  Transmission Date: 20150721
  Serious: Yes (Other)
  Sender: FDA-Public Use
  Company Number: US-2014-14511

PATIENT
  Age: 25 Year
  Sex: Female

DRUGS (4)
  1. ABILIFY MAINTENA [Suspect]
     Active Substance: ARIPIPRAZOLE
     Indication: SCHIZOPHRENIA
     Dosage: 200 MG MILLIGRAM (S), EVERY 28 DAYS, IM (DEPOT)
     Route: 030
     Dates: start: 201410, end: 201410
  2. ATIVAN [Concomitant]
     Active Substance: LORAZEPAM
  3. LAMICTAL [Suspect]
     Active Substance: LAMOTRIGINE
     Indication: SEIZURE
  4. ABILIFY [Suspect]
     Active Substance: ARIPIPRAZOLE
     Indication: SCHIZOPHRENIA
     Route: 048
     Dates: end: 2014

REACTIONS (4)
  - Seizure [None]
  - Dyskinesia [None]
  - Prescribed underdose [None]
  - Treatment noncompliance [None]

NARRATIVE: CASE EVENT DATE: 2014
